FAERS Safety Report 12589626 (Version 1)
Quarter: 2016Q3

REPORT INFORMATION
  Report Type: Report from Study
  Country: US (occurrence: US)
  Receive Date: 20160725
  Receipt Date: 20160725
  Transmission Date: 20161109
  Serious: Yes (Other)
  Sender: FDA-Public Use
  Company Number: US-GILEAD-2016-0220534

PATIENT
  Age: 54 Year
  Sex: Male
  Weight: 118.37 kg

DRUGS (1)
  1. LEDIPASVIR/SOFOSBUVIR [Suspect]
     Active Substance: LEDIPASVIR\SOFOSBUVIR
     Indication: CHRONIC HEPATITIS C
     Dosage: 1 DF, QD
     Route: 048
     Dates: start: 20150725, end: 20151103

REACTIONS (4)
  - Treatment failure [Unknown]
  - Viral mutation identified [Unknown]
  - Hepatitis C [Unknown]
  - Drug ineffective [Unknown]
